FAERS Safety Report 8264782-3 (Version None)
Quarter: 2012Q2

REPORT INFORMATION
  Report Type: 
  Country: None (occurrence: None)
  Receive Date: 20120406
  Receipt Date: 20120404
  Transmission Date: 20120825
  Serious: Yes (Other)
  Sender: FDA-Public Use
  Company Number: US-JNJFOC-20120306886

PATIENT
  Age: 63 Year
  Sex: Male
  Weight: 108.86 kg

DRUGS (5)
  1. CARISOPRODOL [Concomitant]
     Route: 065
  2. MINOXIDIL [Suspect]
     Route: 061
  3. SIMVASTATIN [Concomitant]
     Route: 065
  4. NIFEDIPINE [Concomitant]
     Route: 065
  5. MINOXIDIL [Suspect]
     Indication: ALOPECIA
     Route: 061
     Dates: start: 20120302, end: 20120312

REACTIONS (3)
  - LIP SWELLING [None]
  - VIITH NERVE PARALYSIS [None]
  - SWOLLEN TONGUE [None]
